FAERS Safety Report 7013188-3 (Version None)
Quarter: 2010Q3

REPORT INFORMATION
  Report Type: 
  Country: None (occurrence: None)
  Receive Date: 20100924
  Receipt Date: 20100917
  Transmission Date: 20110219
  Serious: Yes (Other)
  Sender: FDA-Public Use
  Company Number: JP-JNJFOC-20100906132

PATIENT
  Age: 65 Year
  Sex: Female

DRUGS (9)
  1. RISPERDAL [Suspect]
     Indication: PRODUCT USED FOR UNKNOWN INDICATION
     Route: 048
  2. RISPERDAL [Suspect]
     Indication: PRODUCT USED FOR UNKNOWN INDICATION
     Route: 048
  3. HALOMONTH [Suspect]
     Indication: PRODUCT USED FOR UNKNOWN INDICATION
     Route: 030
  4. AKINETON [Concomitant]
     Route: 048
  5. HORIZON [Concomitant]
     Route: 048
  6. LORAZEPAM [Concomitant]
     Route: 048
  7. RHYTHMY [Concomitant]
     Route: 048
  8. PURSENNID [Concomitant]
     Route: 048
  9. AMOBAN [Concomitant]
     Route: 048

REACTIONS (3)
  - COORDINATION ABNORMAL [None]
  - NEUROLEPTIC MALIGNANT SYNDROME [None]
  - SEDATION [None]
